FAERS Safety Report 8414164-6 (Version None)
Quarter: 2012Q2

REPORT INFORMATION
  Report Type: 
  Country: None (occurrence: None)
  Receive Date: 20120605
  Receipt Date: 20120528
  Transmission Date: 20120825
  Serious: Yes (Other)
  Sender: FDA-Public Use
  Company Number: FI-ABBOTT-12P-055-0940713-00

PATIENT
  Sex: Male

DRUGS (1)
  1. HUMIRA [Suspect]
     Indication: RHEUMATOID ARTHRITIS

REACTIONS (17)
  - BLOOD HEAVY METAL INCREASED [None]
  - FUNGAL SKIN INFECTION [None]
  - TOOTH DISORDER [None]
  - ARRHYTHMIA [None]
  - SENSORY LOSS [None]
  - RHEUMATOID ARTHRITIS [None]
  - ONYCHOMYCOSIS [None]
  - PALPITATIONS [None]
  - RASH [None]
  - ACNE [None]
  - MYALGIA [None]
  - RHINORRHOEA [None]
  - URINE FLOW DECREASED [None]
  - ABSCESS RUPTURE [None]
  - JOINT SWELLING [None]
  - MEDICAL DEVICE COMPLICATION [None]
  - ABSCESS LIMB [None]
